FAERS Safety Report 9188722 (Version 4)
Quarter: 2017Q1

REPORT INFORMATION
  Report Type: Spontaneous
  Country: US (occurrence: US)
  Receive Date: 20130325
  Receipt Date: 20170210
  Transmission Date: 20170429
  Serious: Yes (Hospitalization, Other)
  Sender: FDA-Public Use
  Company Number: US-ASTRAZENECA-2012SE20380

PATIENT
  Age: 741 Month
  Sex: Female
  Weight: 63.5 kg

DRUGS (11)
  1. BRILINTA [Suspect]
     Active Substance: TICAGRELOR
     Indication: ACUTE CORONARY SYNDROME
     Route: 048
     Dates: start: 2011, end: 2012
  2. BRILINTA [Suspect]
     Active Substance: TICAGRELOR
     Indication: ACUTE CORONARY SYNDROME
     Route: 048
     Dates: start: 2015, end: 2016
  3. BRILINTA [Suspect]
     Active Substance: TICAGRELOR
     Indication: CORONARY ARTERIAL STENT INSERTION
     Route: 048
     Dates: start: 20170123
  4. BRILINTA [Suspect]
     Active Substance: TICAGRELOR
     Indication: ACUTE CORONARY SYNDROME
     Route: 048
     Dates: start: 2016, end: 20170123
  5. BRILINTA [Suspect]
     Active Substance: TICAGRELOR
     Indication: CORONARY ARTERIAL STENT INSERTION
     Route: 048
     Dates: start: 2016, end: 20170123
  6. BRILINTA [Suspect]
     Active Substance: TICAGRELOR
     Indication: CORONARY ARTERIAL STENT INSERTION
     Route: 048
     Dates: start: 2015, end: 2016
  7. NEXIUM [Suspect]
     Active Substance: ESOMEPRAZOLE MAGNESIUM
     Route: 048
  8. NEXIUM [Suspect]
     Active Substance: ESOMEPRAZOLE MAGNESIUM
     Route: 048
  9. BRILINTA [Suspect]
     Active Substance: TICAGRELOR
     Indication: CORONARY ARTERIAL STENT INSERTION
     Route: 048
     Dates: start: 2011, end: 2012
  10. BRILINTA [Suspect]
     Active Substance: TICAGRELOR
     Indication: ACUTE CORONARY SYNDROME
     Route: 048
     Dates: start: 20170123
  11. BABY ASPIRIN [Concomitant]
     Active Substance: ASPIRIN
     Indication: ADJUVANT THERAPY

REACTIONS (19)
  - Blood triglycerides increased [Unknown]
  - Weight decreased [Unknown]
  - Vomiting [Unknown]
  - Diarrhoea [Unknown]
  - Drug dose omission [Unknown]
  - Extrasystoles [Unknown]
  - Fatigue [Unknown]
  - Anxiety [Unknown]
  - Injection site haemorrhage [Unknown]
  - Nausea [Unknown]
  - Off label use [Unknown]
  - Blood cholesterol increased [Unknown]
  - Contusion [Unknown]
  - Influenza [Unknown]
  - Abdominal discomfort [Unknown]
  - Anaemia [Unknown]
  - Product use issue [Unknown]
  - Heart rate irregular [Unknown]
  - Irritability [Unknown]

NARRATIVE: CASE EVENT DATE: 201505
